FAERS Safety Report 7482106-6 (Version None)
Quarter: 2011Q2

REPORT INFORMATION
  Report Type: 
  Country: None (occurrence: None)
  Receive Date: 20110516
  Receipt Date: 20110505
  Transmission Date: 20111010
  Serious: Yes (Hospitalization)
  Sender: FDA-Public Use
  Company Number: GB-ASTRAZENECA-2011SE26162

PATIENT
  Age: 74 Year
  Sex: Male

DRUGS (15)
  1. TAMSULOSIN HCL [Concomitant]
     Indication: BENIGN PROSTATIC HYPERPLASIA
  2. ASPIRIN [Concomitant]
     Indication: ANGINA PECTORIS
     Route: 048
  3. ATORVASTATIN [Concomitant]
  4. DILTIAZEM [Concomitant]
  5. NICORANDIL [Concomitant]
     Indication: ANGINA PECTORIS
  6. VALSARTAN [Concomitant]
     Indication: ANGINA PECTORIS
  7. ESOMEPRAZOLE MAGNESIUM [Concomitant]
  8. FUROSEMIDE [Concomitant]
     Indication: ANGINA PECTORIS
     Route: 048
  9. TIOTROPIUM BROMIDE [Concomitant]
  10. NICORANDIL [Concomitant]
     Indication: HYPERTENSION
  11. FUROSEMIDE [Concomitant]
     Indication: HYPERTENSION
     Route: 048
  12. ISMN [Concomitant]
  13. VALSARTAN [Concomitant]
     Indication: HYPERTENSION
  14. SYMBICORT [Suspect]
     Indication: CHRONIC OBSTRUCTIVE PULMONARY DISEASE
     Dosage: 2 DF, TWO TIMES A DAY
     Route: 055
     Dates: start: 20110210, end: 20110410
  15. ASPIRIN [Concomitant]
     Indication: HYPERTENSION
     Route: 048

REACTIONS (3)
  - CARDIOSPASM [None]
  - PRINZMETAL ANGINA [None]
  - CHEST PAIN [None]
